FAERS Safety Report 4837612-7 (Version None)
Quarter: 2005Q4

REPORT INFORMATION
  Report Type: 
  Country: None (occurrence: None)
  Receive Date: 20051128
  Receipt Date: 20051031
  Transmission Date: 20060501
  Serious: Yes (Other)
  Sender: FDA-Public Use
  Company Number: AU-GLAXOSMITHKLINE-B0399192A

PATIENT
  Age: 22 Year
  Sex: Male

DRUGS (2)
  1. ACETAMINOPHEN [Suspect]
     Dosage: 120MG PER DAY
     Route: 048
  2. TEMAZEPAM [Concomitant]

REACTIONS (1)
  - INTENTIONAL OVERDOSE [None]
